FAERS Safety Report 12085587 (Version 1)
Quarter: 2016Q1

REPORT INFORMATION
  Report Type: Spontaneous
  Country: FI (occurrence: FI)
  Receive Date: 20160217
  Receipt Date: 20160217
  Transmission Date: 20160526
  Serious: Yes (Life-Threatening)
  Sender: FDA-Public Use
  Company Number: FI-GLAXOSMITHKLINE-FI2016GSK019670

PATIENT
  Age: 32 Year
  Sex: Female

DRUGS (1)
  1. MALARONE [Suspect]
     Active Substance: ATOVAQUONE\PROGUANIL HYDROCHLORIDE
     Indication: MALARIA PROPHYLAXIS
     Dosage: 1 DF, 1D
     Route: 048
     Dates: start: 20151013, end: 20151016

REACTIONS (3)
  - Tinnitus [Recovered/Resolved]
  - Dyspnoea [Recovered/Resolved]
  - Arrhythmia [Recovered/Resolved]

NARRATIVE: CASE EVENT DATE: 20151013
